FAERS Safety Report 13849719 (Version 1)
Quarter: 2017Q3

REPORT INFORMATION
  Report Type: Spontaneous
  Country: IT (occurrence: IT)
  Receive Date: 20170809
  Receipt Date: 20170809
  Transmission Date: 20171127
  Serious: Yes (Other)
  Sender: FDA-Public Use
  Company Number: IT-ASTRAZENECA-2017SE47125

PATIENT
  Age: 11761 Day
  Sex: Male
  Weight: 77 kg

DRUGS (4)
  1. LUCEN [Suspect]
     Active Substance: ESOMEPRAZOLE
     Indication: AFFECT LABILITY
     Route: 048
  2. LUCEN [Suspect]
     Active Substance: ESOMEPRAZOLE
     Indication: GASTROOESOPHAGEAL REFLUX PROPHYLAXIS
     Route: 048
  3. LUCEN [Suspect]
     Active Substance: ESOMEPRAZOLE
     Indication: DEPRESSION
     Route: 048
  4. LUCEN [Suspect]
     Active Substance: ESOMEPRAZOLE
     Indication: PSYCHOMOTOR HYPERACTIVITY
     Route: 048

REACTIONS (3)
  - Depression [Recovered/Resolved]
  - Psychomotor hyperactivity [Recovered/Resolved]
  - Affect lability [Recovered/Resolved]

NARRATIVE: CASE EVENT DATE: 20160601
